FAERS Safety Report 7571172-5 (Version None)
Quarter: 2011Q2

REPORT INFORMATION
  Report Type: 
  Country: None (occurrence: None)
  Receive Date: 20110624
  Receipt Date: 20110618
  Transmission Date: 20111010
  Serious: Yes (Other)
  Sender: FDA-Public Use
  Company Number: CA-PFIZER INC-2011135567

PATIENT
  Age: 48 Year
  Sex: Female

DRUGS (1)
  1. XALATAN [Suspect]
     Indication: GLAUCOMA
     Dosage: 1 GTT, 1X/DAY
     Route: 047
     Dates: start: 20110301

REACTIONS (2)
  - MYOPIA [None]
  - VISUAL ACUITY REDUCED [None]
